FAERS Safety Report 12776602 (Version 1)
Quarter: 2016Q3

REPORT INFORMATION
  Report Type: Spontaneous
  Country: US (occurrence: US)
  Receive Date: 20160923
  Receipt Date: 20160923
  Transmission Date: 20161109
  Serious: No
  Sender: FDA-Public Use
  Company Number: US-PFIZER INC-2016447312

PATIENT
  Age: 52 Year
  Sex: Female

DRUGS (1)
  1. LATANOPROST. [Suspect]
     Active Substance: LATANOPROST
     Dosage: UNK
     Route: 047
     Dates: end: 20160914

REACTIONS (3)
  - Reaction to preservatives [Unknown]
  - Eye pruritus [Unknown]
  - Eye irritation [Unknown]

NARRATIVE: CASE EVENT DATE: 20160922
